FAERS Safety Report 24130314 (Version 1)
Quarter: 2024Q3

REPORT INFORMATION
  Report Type: Report from Study
  Country: US (occurrence: US)
  Receive Date: 20240724
  Receipt Date: 20240724
  Transmission Date: 20241016
  Serious: No
  Sender: ALEXION PHARMACEUTICALS
  Company Number: US-AstraZeneca-CH-00666831A

PATIENT
  Sex: Female

DRUGS (1)
  1. SOLIRIS [Suspect]
     Active Substance: ECULIZUMAB
     Indication: Myasthenia gravis
     Dosage: UNK UNK, Q2W
     Route: 065
     Dates: start: 20240222

REACTIONS (4)
  - Joint range of motion decreased [Unknown]
  - Drug ineffective [Unknown]
  - Fatigue [Unknown]
  - Myalgia [Unknown]
